FAERS Safety Report 4452117-3 (Version None)
Quarter: 2004Q3

REPORT INFORMATION
  Report Type: 
  Country: None (occurrence: None)
  Receive Date: 20040916
  Receipt Date: 20040812
  Transmission Date: 20050211
  Serious: Yes (Death)
  Sender: FDA-Public Use
  Company Number: 2004SE03829

PATIENT
  Age: 75 Year
  Sex: Male
  Weight: 70 kg

DRUGS (4)
  1. CRESTOR [Suspect]
     Indication: PROPHYLAXIS
     Dosage: 10 MG DAILY PO
     Route: 048
     Dates: start: 20040603, end: 20040627
  2. ASCAL [Concomitant]
  3. ATACAND [Concomitant]
  4. SELOKEEN [Concomitant]

REACTIONS (7)
  - ASTHENIA [None]
  - FATIGUE [None]
  - IMPLANT SITE INFECTION [None]
  - PROCEDURAL COMPLICATION [None]
  - PYREXIA [None]
  - SEPSIS [None]
  - THIRST [None]
